FAERS Safety Report 9400629 (Version 3)
Quarter: 2014Q2

REPORT INFORMATION
  Report Type: Spontaneous
  Country: US (occurrence: US)
  Receive Date: 20130715
  Receipt Date: 20140425
  Transmission Date: 20141212
  Serious: Yes (Other)
  Sender: FDA-Public Use
  Company Number: US-GLAXOSMITHKLINE-A1032603A

PATIENT
  Age: 37 Year
  Sex: Male
  Weight: 98.2 kg

DRUGS (1)
  1. AVANDIA [Suspect]
     Indication: TYPE 2 DIABETES MELLITUS
     Dosage: 8MG PER DAY
     Route: 048
     Dates: start: 20010516, end: 20011121

REACTIONS (5)
  - Myocardial infarction [Unknown]
  - Angina unstable [Unknown]
  - Cardiac failure congestive [Unknown]
  - Ischaemia [Unknown]
  - Coronary artery disease [Unknown]
